FAERS Safety Report 4299907-8 (Version None)
Quarter: 2004Q1

REPORT INFORMATION
  Report Type: 
  Country: None (occurrence: None)
  Receive Date: 20040219
  Receipt Date: 20040219
  Transmission Date: 20041129
  Serious: Yes (Hospitalization)
  Sender: FDA-Public Use
  Company Number: None

PATIENT
  Age: 54 Year
  Sex: Male

DRUGS (9)
  1. METOLAZONE [Suspect]
     Dosage: 1 PO BID
     Route: 048
  2. ZYPREXA [Concomitant]
  3. NAVANE [Concomitant]
  4. PAXIL [Concomitant]
  5. VALIUM [Concomitant]
  6. VISTARIL [Concomitant]
  7. LEVOTHYROXINE SODIUM [Concomitant]
  8. TERAZOSIN HCL [Concomitant]
  9. CYCLOBENZAPRINE [Concomitant]

REACTIONS (5)
  - ASTHENIA [None]
  - HYPOKALAEMIA [None]
  - MENTAL STATUS CHANGES [None]
  - NAUSEA [None]
  - VOMITING [None]
